FAERS Safety Report 16207374 (Version 1)
Quarter: 2019Q2

REPORT INFORMATION
  Report Type: Spontaneous
  Country: US (occurrence: US)
  Receive Date: 20190313
  Receipt Date: 20190313
  Transmission Date: 20190711
  Serious: Yes (Life-Threatening, Hospitalization, Disabling, Other)
  Sender: FDA-Public Use
  Company Number: None

PATIENT
  Age: 64 Year
  Sex: Male
  Weight: 83.91 kg

DRUGS (12)
  1. CIMZIA [Suspect]
     Active Substance: CERTOLIZUMAB PEGOL
     Indication: RHEUMATOID ARTHRITIS
     Dosage: ?          QUANTITY:2 UNK - UNKNOWN;OTHER FREQUENCY:2 X 2 WEEKS ;?
     Dates: start: 20190107, end: 20190121
  2. METOPROLOL SUCCINATE. [Concomitant]
     Active Substance: METOPROLOL SUCCINATE
  3. LEVEMIN [Concomitant]
  4. FLEXERIL [Concomitant]
     Active Substance: CYCLOBENZAPRINE HYDROCHLORIDE
  5. MONTELUKAST [Concomitant]
     Active Substance: MONTELUKAST SODIUM
  6. RAMIPRIL. [Concomitant]
     Active Substance: RAMIPRIL
  7. VITAMIN C [Concomitant]
     Active Substance: ASCORBIC ACID
  8. INSULIN [Concomitant]
     Active Substance: INSULIN NOS
  9. OXYCODONE/ACETAMINOPHEN [Concomitant]
     Active Substance: ACETAMINOPHEN\OXYCODONE HYDROCHLORIDE
  10. LORATADINE. [Concomitant]
     Active Substance: LORATADINE
  11. NOVOLOG [Concomitant]
     Active Substance: INSULIN ASPART
  12. LEFLUNOMIDE. [Concomitant]
     Active Substance: LEFLUNOMIDE

REACTIONS (3)
  - Diarrhoea [None]
  - Influenza like illness [None]
  - Fall [None]

NARRATIVE: CASE EVENT DATE: 20190121
